FAERS Safety Report 9181620 (Version 1)
Quarter: 2013Q1

REPORT INFORMATION
  Report Type: Spontaneous
  Country: US (occurrence: US)
  Receive Date: 20130322
  Receipt Date: 20130322
  Transmission Date: 20140127
  Serious: Yes (Other)
  Sender: FDA-Public Use
  Company Number: US-BAYER-2013-033807

PATIENT
  Age: 23 Year
  Sex: Female

DRUGS (7)
  1. YAZ [Suspect]
     Indication: CONTRACEPTION
     Dosage: UNK
  2. ACYCLOVIR [ACICLOVIR] [Concomitant]
     Dosage: 800 MG, THREE TIMES A DAY
     Route: 048
     Dates: start: 20090305
  3. ANTACIDS [Concomitant]
     Dosage: UNK
     Route: 048
     Dates: start: 20090305
  4. AMOXICILLIN [Concomitant]
     Dosage: 875 MG, TWICE A DAILY FOR 10 DAYS
     Route: 048
     Dates: start: 20090305
  5. ACIPHEX [Concomitant]
     Dosage: 20 MG, DAILY
     Route: 048
     Dates: start: 20090305
  6. TORADOL [Concomitant]
     Dosage: UNK
     Route: 048
     Dates: start: 20090702
  7. PROCHLORPERAZINE [Concomitant]
     Dosage: UNK
     Route: 048
     Dates: start: 20090702

REACTIONS (1)
  - Deep vein thrombosis [None]
